FAERS Safety Report 12414981 (Version 1)
Quarter: 2016Q2

REPORT INFORMATION
  Report Type: Report from Study
  Country: US (occurrence: US)
  Receive Date: 20160530
  Receipt Date: 20160530
  Transmission Date: 20160815
  Serious: No
  Sender: FDA-Public Use
  Company Number: PHEH2016US013166

PATIENT
  Sex: Female

DRUGS (4)
  1. GLEEVEC [Suspect]
     Active Substance: IMATINIB MESYLATE
     Indication: CONNECTIVE TISSUE NEOPLASM
  2. IMATINIB [Suspect]
     Active Substance: IMATINIB
     Indication: CONNECTIVE TISSUE NEOPLASM
  3. GLEEVEC [Suspect]
     Active Substance: IMATINIB MESYLATE
     Indication: GASTROINTESTINAL STROMAL TUMOUR
     Route: 065
  4. IMATINIB [Suspect]
     Active Substance: IMATINIB
     Indication: GASTROINTESTINAL STROMAL TUMOUR
     Dosage: 400 MG/KG, UNK
     Route: 065

REACTIONS (4)
  - Feeding disorder [Unknown]
  - Insomnia [Unknown]
  - Muscle spasms [Unknown]
  - Joint swelling [Unknown]
